FAERS Safety Report 9494019 (Version 2)
Quarter: 2013Q4

REPORT INFORMATION
  Report Type: Spontaneous
  Country: IT (occurrence: IT)
  Receive Date: 20130903
  Receipt Date: 20131029
  Transmission Date: 20140711
  Serious: Yes (Hospitalization)
  Sender: FDA-Public Use
  Company Number: IT-BRISTOL-MYERS SQUIBB COMPANY-19234384

PATIENT
  Age: 88 Year
  Sex: Female

DRUGS (1)
  1. COUMADIN TABS 5 MG [Suspect]
     Indication: PULMONARY EMBOLISM
     Route: 048
     Dates: start: 20100715, end: 20130830

REACTIONS (1)
  - Head injury [Recovering/Resolving]
